FAERS Safety Report 9917200 (Version 2)
Quarter: 2014Q1

REPORT INFORMATION
  Report Type: Spontaneous
  Country: JP (occurrence: JP)
  Receive Date: 20140221
  Receipt Date: 20140227
  Transmission Date: 20141002
  Serious: Yes (Hospitalization)
  Sender: FDA-Public Use
  Company Number: JP-PFIZER INC-2014045381

PATIENT
  Age: 30 Year
  Sex: Female

DRUGS (3)
  1. MINIPRESS [Suspect]
     Indication: HYPOAESTHESIA
     Dosage: 1.5 MG, 3X/DAY
  2. PREDONINE [Concomitant]
     Indication: SYSTEMIC LUPUS ERYTHEMATOSUS
     Dosage: UNK
  3. ISCOTIN [Concomitant]
     Indication: MENINGITIS ASEPTIC
     Dosage: UNK

REACTIONS (2)
  - Arthropathy [Unknown]
  - Off label use [Unknown]
